FAERS Safety Report 12982200 (Version 1)
Quarter: 2016Q4

REPORT INFORMATION
  Report Type: Spontaneous
  Country: US (occurrence: US)
  Receive Date: 20161128
  Receipt Date: 20161128
  Transmission Date: 20170207
  Serious: No
  Sender: FDA-Public Use
  Company Number: None

PATIENT
  Age: 70 Year
  Sex: Female

DRUGS (1)
  1. HUMIRA [Suspect]
     Active Substance: ADALIMUMAB
     Indication: CROHN^S DISEASE
     Dosage: 160MG DAY 1, 80MG DAY 15, 40MG EVERY TAPERING EVERY OTHER SUBCUTANEOUSLY
     Route: 058
     Dates: start: 20160816, end: 20161012

REACTIONS (1)
  - Unevaluable event [None]
